FAERS Safety Report 7641199-3 (Version None)
Quarter: 2011Q3

REPORT INFORMATION
  Report Type: 
  Country: None (occurrence: None)
  Receive Date: 20110728
  Receipt Date: 20110718
  Transmission Date: 20111222
  Serious: Yes (Hospitalization, Other)
  Sender: FDA-Public Use
  Company Number: PHHY2011CA65090

PATIENT
  Sex: Female

DRUGS (1)
  1. CLOZAPINE [Suspect]
     Indication: SCHIZOPHRENIA
     Dosage: 400 MG, DAILY
     Dates: start: 20000622

REACTIONS (3)
  - TRANSIENT ISCHAEMIC ATTACK [None]
  - ANTIPSYCHOTIC DRUG LEVEL INCREASED [None]
  - URINARY TRACT INFECTION [None]
